FAERS Safety Report 4558225-0 (Version None)
Quarter: 2005Q1

REPORT INFORMATION
  Report Type: 
  Country: None (occurrence: None)
  Receive Date: 20050121
  Receipt Date: 20030805
  Transmission Date: 20050727
  Serious: Yes (Hospitalization, Other)
  Sender: FDA-Public Use
  Company Number: AU-AMGEN-AUS044201

PATIENT
  Sex: Male

DRUGS (5)
  1. ARANESP [Suspect]
     Indication: RENAL FAILURE CHRONIC
     Route: 058
     Dates: start: 20030226, end: 20030729
  2. EPREX [Suspect]
     Indication: RENAL FAILURE CHRONIC
     Dates: start: 20021024, end: 20030213
  3. CALTRATE [Concomitant]
  4. PLENDIL [Concomitant]
  5. ATENOLOL [Concomitant]

REACTIONS (2)
  - ANTIBODY TEST POSITIVE [None]
  - APLASIA PURE RED CELL [None]
